FAERS Safety Report 5127585-4 (Version None)
Quarter: 2006Q4

REPORT INFORMATION
  Report Type: 
  Country: None (occurrence: None)
  Receive Date: 20061016
  Receipt Date: 20061003
  Transmission Date: 20070319
  Serious: Yes (Life-Threatening)
  Sender: FDA-Public Use
  Company Number: FR-AVENTIS-200613445FR

PATIENT
  Age: 57 Year
  Sex: Female
  Weight: 55 kg

DRUGS (3)
  1. TAXOTERE [Suspect]
     Indication: BREAST CANCER
     Route: 042
     Dates: start: 20041231, end: 20050419
  2. FARMORUBICINE                      /00699301/ [Suspect]
     Indication: BREAST CANCER
     Route: 042
     Dates: start: 20041230, end: 20050419
  3. XELODA [Suspect]
     Indication: BREAST CANCER
     Route: 048
     Dates: start: 20050601, end: 20060701

REACTIONS (3)
  - ACUTE LEUKAEMIA [None]
  - ACUTE MYELOMONOCYTIC LEUKAEMIA [None]
  - NEOPLASM PROGRESSION [None]
